FAERS Safety Report 5087105-X (Version None)
Quarter: 2006Q3

REPORT INFORMATION
  Report Type: 
  Country: None (occurrence: None)
  Receive Date: 20060821
  Receipt Date: 20060810
  Transmission Date: 20061208
  Serious: Yes (Hospitalization)
  Sender: FDA-Public Use
  Company Number: 2006097417

PATIENT
  Age: 77 Year
  Sex: Female
  Weight: 95 kg

DRUGS (3)
  1. FRAGMIN [Suspect]
     Indication: THROMBOSIS PROPHYLAXIS
     Dosage: 5000 I.U. (5000 I.U., DAILY) SUBCUTANEOUS
     Route: 058
     Dates: start: 20060730
  2. DICLOMELAN (DICLOFENAC SODIUM) [Concomitant]
  3. PANTOPRAZOLE SODIUM [Concomitant]

REACTIONS (3)
  - DEEP VEIN THROMBOSIS [None]
  - DRUG INEFFECTIVE [None]
  - KNEE ARTHROPLASTY [None]
